FAERS Safety Report 18255127 (Version 1)
Quarter: 2020Q3

REPORT INFORMATION
  Report Type: Spontaneous
  Country: HU (occurrence: HU)
  Receive Date: 20200910
  Receipt Date: 20200910
  Transmission Date: 20201103
  Serious: Yes (Other)
  Sender: FDA-Public Use
  Company Number: NVSC2020HU243908

PATIENT

DRUGS (3)
  1. SANDOSTATIN LAR DEPOT [Suspect]
     Active Substance: OCTREOTIDE ACETATE
  2. SANDOSTATIN LAR DEPOT [Suspect]
     Active Substance: OCTREOTIDE ACETATE
     Indication: THYROID NEOPLASM
     Dosage: 20 MG, QMO
     Route: 065
     Dates: start: 2015, end: 2020
  3. SANDOSTATIN LAR DEPOT [Suspect]
     Active Substance: OCTREOTIDE ACETATE

REACTIONS (13)
  - Fear [Unknown]
  - Hyperhidrosis [Recovered/Resolved]
  - Decreased appetite [Recovered/Resolved]
  - Abdominal distension [Recovered/Resolved]
  - Renal failure [Unknown]
  - Diabetes mellitus [Unknown]
  - Abdominal hernia [Unknown]
  - Syncope [Unknown]
  - Overdose [Unknown]
  - Fatigue [Recovered/Resolved]
  - Depressed mood [Unknown]
  - Tremor [Unknown]
  - Malaise [Recovered/Resolved]
